FAERS Safety Report 13900503 (Version 1)
Quarter: 2017Q3

REPORT INFORMATION
  Report Type: Spontaneous
  Country: GB (occurrence: GB)
  Receive Date: 20170823
  Receipt Date: 20170823
  Transmission Date: 20171127
  Serious: Yes (Other)
  Sender: FDA-Public Use
  Company Number: GB-INTERNATIONAL MEDICATION SYSTEMS, LIMITED-2025022

PATIENT
  Age: 2 Month
  Sex: Female

DRUGS (1)
  1. MORPHINE SULPHATE [Suspect]
     Active Substance: MORPHINE SULFATE
     Route: 042

REACTIONS (4)
  - Oxygen saturation decreased [Recovered/Resolved]
  - Drug administration error [Unknown]
  - Bradycardia [Recovered/Resolved]
  - Apnoea [Recovered/Resolved]
